FAERS Safety Report 25371646 (Version 1)
Quarter: 2025Q2

REPORT INFORMATION
  Report Type: Spontaneous
  Country: CN (occurrence: CN)
  Receive Date: 20250529
  Receipt Date: 20250529
  Transmission Date: 20250716
  Serious: Yes (Hospitalization)
  Sender: NOVARTIS
  Company Number: CN-002147023-NVSC2025CN085614

PATIENT
  Age: 49 Year
  Sex: Female
  Weight: 57.7 kg

DRUGS (3)
  1. MYCOPHENOLATE SODIUM [Suspect]
     Active Substance: MYCOPHENOLATE SODIUM
     Indication: Immunosuppression
     Dosage: 540.000 MG, BID (ENTERIC COATED TABLETS)
     Route: 048
     Dates: start: 20250325, end: 20250414
  2. MYCOPHENOLATE SODIUM [Suspect]
     Active Substance: MYCOPHENOLATE SODIUM
     Dosage: BID, (540MG IN THE MORNING AND 360MG IN THE EVENING)
     Route: 065
     Dates: start: 20250415
  3. MYCOPHENOLATE SODIUM [Suspect]
     Active Substance: MYCOPHENOLATE SODIUM
     Dosage: 360 MG, BID
     Route: 065
     Dates: start: 20250416

REACTIONS (3)
  - Gastrointestinal disorder [Recovered/Resolved]
  - Diarrhoea [Recovered/Resolved]
  - Vomiting [Recovered/Resolved]

NARRATIVE: CASE EVENT DATE: 20250414
